FAERS Safety Report 24844409 (Version 1)
Quarter: 2025Q1

REPORT INFORMATION
  Report Type: Spontaneous
  Country: US (occurrence: None)
  Receive Date: 20250114
  Receipt Date: 20250114
  Transmission Date: 20250409
  Serious: Yes (Hospitalization)
  Sender: FDA-CTU
  Company Number: None

PATIENT
  Sex: Female

DRUGS (2)
  1. HUMIRA [Suspect]
     Active Substance: ADALIMUMAB
     Indication: Crohn^s disease
     Dosage: OTHER FREQUENCY : EVERY 14 DAYS;?HUMIRA STARTING DOSE 02/2024: INJECT 2 PENS UNDER THE SKIN ON DAY 1, THEN 1 PEN ON DAY 15, THEN START MAINTENANCE DOSING AS DIRECTED ON DAY 29
     Route: 058
     Dates: start: 202402
  2. HUMIRA [Suspect]
     Active Substance: ADALIMUMAB
     Indication: Abscess intestinal

REACTIONS (2)
  - Crohn^s disease [None]
  - Abscess intestinal [None]
